FAERS Safety Report 5344919-6 (Version None)
Quarter: 2007Q2

REPORT INFORMATION
  Report Type: 
  Country: None (occurrence: None)
  Receive Date: 20070416
  Receipt Date: 20070314
  Transmission Date: 20071010
  Serious: No
  Sender: FDA-Public Use
  Company Number: 2007SP000928

PATIENT
  Age: 45 Year
  Sex: Female
  Weight: 65.7716 kg

DRUGS (3)
  1. LUNESTA [Suspect]
     Indication: INSOMNIA
     Dosage: 3 MG; PRN; ORAL
     Route: 048
     Dates: start: 20050101, end: 20070101
  2. CORTICOSTEROIDS [Concomitant]
  3. ADVIL [Concomitant]

REACTIONS (2)
  - MEMORY IMPAIRMENT [None]
  - PARASOMNIA [None]
